FAERS Safety Report 6634041-0 (Version None)
Quarter: 2010Q1

REPORT INFORMATION
  Report Type: 
  Country: None (occurrence: None)
  Receive Date: 20100315
  Receipt Date: 20100309
  Transmission Date: 20100710
  Serious: Yes (Life-Threatening, Hospitalization, Disabling)
  Sender: FDA-Public Use
  Company Number: PHEH2010US03036

PATIENT
  Sex: Female
  Weight: 48.526 kg

DRUGS (6)
  1. ZOMETA [Suspect]
     Indication: MULTIPLE MYELOMA
     Dosage: 3.3 MG, UNK
     Dates: start: 20100202
  2. REVLIMID [Concomitant]
     Dosage: 10 MG, QD
  3. LISINOPRIL [Concomitant]
     Dosage: 5 MG, QD
  4. REGLAN [Concomitant]
     Dosage: 50 MG, UNK
  5. LIPITOR [Concomitant]
     Dosage: 10 MG, UNK
  6. TYLENOL-500 [Concomitant]
     Dosage: 325 MG, UNK

REACTIONS (7)
  - ASTHENIA [None]
  - BLOOD CREATININE INCREASED [None]
  - DECREASED APPETITE [None]
  - FATIGUE [None]
  - NAUSEA [None]
  - RENAL TUBULAR NECROSIS [None]
  - VOMITING [None]
